FAERS Safety Report 11665659 (Version 2)
Quarter: 2015Q4

REPORT INFORMATION
  Report Type: Spontaneous
  Country: US (occurrence: US)
  Receive Date: 20151027
  Receipt Date: 20151216
  Transmission Date: 20160304
  Serious: Yes (Other)
  Sender: FDA-Public Use
  Company Number: US-SA-2015SA170072

PATIENT
  Age: 60 Year
  Sex: Female

DRUGS (2)
  1. RENVELA [Suspect]
     Active Substance: SEVELAMER CARBONATE
     Indication: HYPOPHOSPHATAEMIA
     Route: 065
     Dates: end: 201402
  2. RENVELA [Suspect]
     Active Substance: SEVELAMER CARBONATE
     Indication: HYPOPHOSPHATAEMIA
     Route: 065
     Dates: start: 201411

REACTIONS (5)
  - Osteoporosis [Not Recovered/Not Resolved]
  - Pruritus [Not Recovered/Not Resolved]
  - Expired product administered [Unknown]
  - Renal failure [Not Recovered/Not Resolved]
  - Rash [Not Recovered/Not Resolved]

NARRATIVE: CASE EVENT DATE: 2014
